FAERS Safety Report 15599130 (Version 2)
Quarter: 2018Q4

REPORT INFORMATION
  Report Type: Spontaneous
  Country: ID (occurrence: ID)
  Receive Date: 20181108
  Receipt Date: 20181119
  Transmission Date: 20190205
  Serious: Yes (Death, Life-Threatening, Hospitalization, Other)
  Sender: FDA-Public Use
  Company Number: ID-BAYER-2018-183350

PATIENT
  Age: 69 Year
  Sex: Male

DRUGS (1)
  1. NEXAVAR [Suspect]
     Active Substance: SORAFENIB
     Indication: HEPATOCELLULAR CARCINOMA
     Dosage: 400 MG DAILY DOSE (2 X 1)
     Route: 048
     Dates: start: 20180929, end: 20181001

REACTIONS (10)
  - Metastases to bone [None]
  - Metastases to spine [None]
  - Decreased appetite [Fatal]
  - Pneumonia [Fatal]
  - Haemoptysis [Not Recovered/Not Resolved]
  - Asthenia [Fatal]
  - Dyspnoea [Fatal]
  - Decreased appetite [Not Recovered/Not Resolved]
  - Haemoptysis [Fatal]
  - Pleural effusion [None]

NARRATIVE: CASE EVENT DATE: 20180930
